FAERS Safety Report 26216537 (Version 1)
Quarter: 2025Q4

REPORT INFORMATION
  Report Type: Spontaneous
  Country: RU (occurrence: RU)
  Receive Date: 20251231
  Receipt Date: 20251231
  Transmission Date: 20260118
  Serious: Yes (Hospitalization, Other)
  Sender: NOVARTIS
  Company Number: RU-002147023-NVSC2025RU197652

PATIENT
  Age: 6 Year
  Sex: Male
  Weight: 18.8 kg

DRUGS (2)
  1. TRILEPTAL [Suspect]
     Active Substance: OXCARBAZEPINE
     Indication: Epilepsy
     Dosage: UNK UNK, BID (144MG/ 2.4ML)
     Route: 048
     Dates: start: 20251119, end: 20251202
  2. KEPPRA [Concomitant]
     Active Substance: LEVETIRACETAM
     Indication: Product used for unknown indication
     Dosage: 500 MG, BID
     Route: 048

REACTIONS (2)
  - Rash [Recovered/Resolved]
  - Hyperaemia [Recovering/Resolving]

NARRATIVE: CASE EVENT DATE: 20251202
